FAERS Safety Report 15122417 (Version 1)
Quarter: 2018Q3

REPORT INFORMATION
  Report Type: Spontaneous
  Country: FR (occurrence: FR)
  Receive Date: 20180709
  Receipt Date: 20180709
  Transmission Date: 20181010
  Serious: Yes (Life-Threatening)
  Sender: FDA-Public Use
  Company Number: FR-MYLANLABS-2018M1048368

PATIENT
  Age: 54 Year
  Sex: Male
  Weight: 68 kg

DRUGS (7)
  1. DEXAMETHASONE. [Suspect]
     Active Substance: DEXAMETHASONE
     Indication: PROPHYLAXIS OF NAUSEA AND VOMITING
     Dosage: 8 MG, UNK
     Route: 042
  2. HYPNOMIDATE [Suspect]
     Active Substance: ETOMIDATE SULFATE
     Indication: ANAESTHESIA
     Route: 042
  3. TRACRIUM [Suspect]
     Active Substance: ATRACURIUM BESYLATE
     Indication: ANAESTHESIA
     Dosage: 30 MG, UNK
     Route: 042
  4. KETAMINE RENAUDIN [Suspect]
     Active Substance: KETAMINE
     Indication: ANAESTHESIA
     Dosage: 20 MG, UNK
     Route: 042
  5. DIPRIVAN [Suspect]
     Active Substance: PROPOFOL
     Indication: ANAESTHESIA
     Dosage: 200 MG, UNK
     Route: 042
  6. SUFENTA [Suspect]
     Active Substance: SUFENTANIL CITRATE
     Indication: ANAESTHESIA
     Dosage: 15 G, UNK
     Route: 042
  7. CEFAZOLIN MYLAN [Suspect]
     Active Substance: CEFAZOLIN
     Indication: ANTIBIOTIC PROPHYLAXIS
     Dosage: 2 G, UNK
     Route: 042

REACTIONS (5)
  - Cardiac arrest [Recovered/Resolved]
  - Bradycardia [Recovering/Resolving]
  - Rash [Recovering/Resolving]
  - Hypotension [Recovering/Resolving]
  - Tachycardia [Recovering/Resolving]

NARRATIVE: CASE EVENT DATE: 20180321
